FAERS Safety Report 20982816 (Version 4)
Quarter: 2022Q3

REPORT INFORMATION
  Report Type: Spontaneous
  Country: BR (occurrence: BR)
  Receive Date: 20220620
  Receipt Date: 20220729
  Transmission Date: 20221027
  Serious: Yes (Hospitalization)
  Sender: FDA-Public Use
  Company Number: BR-BAXTER-2022BAX009927

PATIENT
  Age: 25 Year
  Sex: Female

DRUGS (2)
  1. IRON [Suspect]
     Active Substance: IRON
     Indication: Anaemia
     Dosage: ENDOVENOUS ROUTE, 2 AMPOULES OF SUCROFER DILUTED IN 200 ML OF 0.9% SODIUM CHLORIDE IN 60 MINUTES
     Route: 042
     Dates: start: 20220422
  2. SODIUM CHLORIDE [Suspect]
     Active Substance: SODIUM CHLORIDE
     Indication: Medication dilution
     Dosage: ENDOVENOUS ROUTE, 200 ML(DILUTED IN 200ML OF 0.9SODIUM CHLORIDE IN 60MIN)
     Route: 042
     Dates: start: 20220422

REACTIONS (6)
  - Superficial vein thrombosis [Recovered/Resolved]
  - Puncture site pain [Recovered/Resolved]
  - Oedema peripheral [Unknown]
  - Paraesthesia [Unknown]
  - Pain [Unknown]
  - Pain in extremity [Not Recovered/Not Resolved]

NARRATIVE: CASE EVENT DATE: 20220501
